FAERS Safety Report 12612179 (Version 1)
Quarter: 2016Q3

REPORT INFORMATION
  Report Type: Spontaneous
  Country: KR (occurrence: KR)
  Receive Date: 20160801
  Receipt Date: 20160801
  Transmission Date: 20161109
  Serious: Yes (Death, Hospitalization)
  Sender: FDA-Public Use
  Company Number: KR-NORTH CREEK PHARMACEUTICALS LLC-2016VTS00031

PATIENT

DRUGS (1)
  1. DAPSONE. [Suspect]
     Active Substance: DAPSONE
     Route: 048

REACTIONS (9)
  - Respiratory failure [None]
  - Intentional overdose [Fatal]
  - Renal failure [None]
  - Pneumonia [Fatal]
  - Multiple organ dysfunction syndrome [Fatal]
  - Coma [Fatal]
  - Methaemoglobinaemia [Fatal]
  - Haemolysis [Fatal]
  - Brain injury [Fatal]
